FAERS Safety Report 13965457 (Version 1)
Quarter: 2017Q3

REPORT INFORMATION
  Report Type: Spontaneous
  Country: US (occurrence: US)
  Receive Date: 20170913
  Receipt Date: 20170913
  Transmission Date: 20171128
  Serious: Yes (Hospitalization)
  Sender: FDA-Public Use
  Company Number: US-LPDUSPRD-20171260

PATIENT
  Age: 62 Year
  Sex: Female

DRUGS (1)
  1. DEXMEDETOMIDINE HYDROCHLORIDE INJECTION (0517-0995-25) [Suspect]
     Active Substance: DEXMEDETOMIDINE HYDROCHLORIDE
     Dosage: UNKNOWN
     Route: 042

REACTIONS (9)
  - Confusional state [None]
  - Hypertension [None]
  - Aggression [None]
  - Delirium tremens [None]
  - Respiratory distress [None]
  - Anaphylactic shock [Recovered/Resolved]
  - Rash [None]
  - Tachycardia [None]
  - Hallucination, auditory [None]
